FAERS Safety Report 8373362-0 (Version None)
Quarter: 2012Q2

REPORT INFORMATION
  Report Type: 
  Country: None (occurrence: None)
  Receive Date: 20120521
  Receipt Date: 20120509
  Transmission Date: 20120825
  Serious: Yes (Hospitalization, Other)
  Sender: FDA-Public Use
  Company Number: US-ELI_LILLY_AND_COMPANY-US201105004153

PATIENT
  Sex: Female
  Weight: 73 kg

DRUGS (16)
  1. CLONAZEPAM [Concomitant]
  2. LISINOPRIL [Concomitant]
  3. COUMADIN [Concomitant]
  4. FORTEO [Suspect]
     Dosage: 20 UG, QD
     Dates: start: 20110701
  5. FORTEO [Suspect]
     Dosage: 20 UG, QD
  6. FORTEO [Suspect]
     Dosage: 20 UG, QD
  7. CRESTOR [Concomitant]
  8. FORTEO [Suspect]
     Indication: OSTEOPOROSIS
     Dosage: 20 UG, QD
     Dates: end: 20110701
  9. OXYCODONE HCL [Concomitant]
  10. FORTEO [Suspect]
     Dosage: 20 UG, QD
  11. CELEBREX [Concomitant]
  12. VITAMIN D [Concomitant]
  13. CALCIUM [Concomitant]
  14. FLUOXETINE [Concomitant]
  15. ACTIVELLA [Concomitant]
  16. B12                                /00056202/ [Concomitant]

REACTIONS (6)
  - WEIGHT INCREASED [None]
  - SNEEZING [None]
  - SPEECH DISORDER [None]
  - SINUS DISORDER [None]
  - BLOOD PRESSURE FLUCTUATION [None]
  - ARTHROPATHY [None]
